FAERS Safety Report 24729703 (Version 1)
Quarter: 2024Q4

REPORT INFORMATION
  Report Type: Report from Study
  Country: IT (occurrence: IT)
  Receive Date: 20241213
  Receipt Date: 20241213
  Transmission Date: 20250115
  Serious: Yes (Other)
  Sender: TEVA
  Company Number: None

PATIENT
  Age: 70 Year
  Sex: Male

DRUGS (4)
  1. VINCRISTINE [Suspect]
     Active Substance: VINCRISTINE
     Indication: T-cell lymphoma
     Dosage: VINCRISTINA TEVA ITALIA;?BATCH NUMBER: LOT: 23L04KD S
     Route: 042
     Dates: start: 20240928, end: 20240928
  2. DOXORUBICIN HYDROCHLORIDE [Suspect]
     Active Substance: DOXORUBICIN HYDROCHLORIDE
     Indication: T-cell lymphoma
     Dosage: BATCH NUMBER: LOT: HJ8009 S
     Route: 042
     Dates: start: 20240928, end: 20240928
  3. CYCLOPHOSPHAMIDE [Suspect]
     Active Substance: CYCLOPHOSPHAMIDE
     Indication: T-cell lymphoma
     Dosage: ENDOXAN BAXTER;?BATCH NUMBER: LOT: 3K316C S
     Route: 042
     Dates: start: 20240928, end: 20240928
  4. ALLOPURINOLO DOC GENERICI [Concomitant]
     Indication: Hyperuricaemia
     Dosage: ALLOPURINOL DOC*30CPR 300MG
     Route: 048
     Dates: start: 20240927, end: 20241008

REACTIONS (2)
  - Neutropenia [Recovered/Resolved]
  - Rash [Recovering/Resolving]

NARRATIVE: CASE EVENT DATE: 20241007
